FAERS Safety Report 8724003 (Version 3)
Quarter: 2012Q4

REPORT INFORMATION
  Report Type: Spontaneous
  Country: DE (occurrence: None)
  Receive Date: 20120727
  Receipt Date: 20120829
  Transmission Date: 20130627
  Serious: Yes (Other)
  Sender: FDA-Public Use
  Company Number: DE-1193192

PATIENT
  Age: 5 Year
  Sex: Male
  Weight: 18.3 kg

DRUGS (3)
  1. CYCLOGYL [Suspect]
     Indication: OPHTHALMOLOGICAL EXAMINATION
     Dosage: (1 GTT 1X/10 MINUTES OU OPHTHALMIC)
     Route: 047
     Dates: start: 20120712, end: 20120712
  2. ENCEPUR [Concomitant]
  3. ZYKLOLAT EYE DROPS (ZYKLOLATE) (NOT SPECIFIED) [Suspect]
     Dosage: 1x/10 minutes OU Ophthalmic
     Route: 047
     Dates: start: 20120712, end: 20120712

REACTIONS (4)
  - Hallucination, visual [None]
  - Gait disturbance [None]
  - Flushing [None]
  - Body temperature increased [None]
